FAERS Safety Report 13039004 (Version 1)
Quarter: 2016Q4

REPORT INFORMATION
  Report Type: Report from Study
  Country: US (occurrence: US)
  Receive Date: 20161219
  Receipt Date: 20161219
  Transmission Date: 20170207
  Serious: No
  Sender: FDA-Public Use
  Company Number: US-AMGEN-USASL2016174779

PATIENT
  Age: 60 Year
  Sex: Female

DRUGS (1)
  1. ENBREL [Suspect]
     Active Substance: ETANERCEPT
     Indication: ANKYLOSING SPONDYLITIS
     Dosage: 50 MG, QWK
     Route: 065
     Dates: start: 20161019

REACTIONS (5)
  - Back pain [Unknown]
  - Injection site erythema [Recovered/Resolved]
  - Arthralgia [Unknown]
  - Pelvic pain [Unknown]
  - Injection site discolouration [Recovered/Resolved]

NARRATIVE: CASE EVENT DATE: 2016
